FAERS Safety Report 17685745 (Version 2)
Quarter: 2020Q4

REPORT INFORMATION
  Report Type: Spontaneous
  Country: US (occurrence: US)
  Receive Date: 20200420
  Receipt Date: 20201117
  Transmission Date: 20210113
  Serious: Yes (Other)
  Sender: FDA-Public Use
  Company Number: US-ASTRAZENECA-2019SE11617

PATIENT
  Age: 22557 Day
  Sex: Male
  Weight: 93.9 kg

DRUGS (45)
  1. PANTOPRAZOLE [Suspect]
     Active Substance: PANTOPRAZOLE
     Indication: GASTROOESOPHAGEAL REFLUX DISEASE
     Route: 065
  2. METOPROLOL SUCCINATE. [Concomitant]
     Active Substance: METOPROLOL SUCCINATE
     Dates: start: 20150325
  3. LISINOPRIL. [Concomitant]
     Active Substance: LISINOPRIL
     Dates: start: 20160124
  4. CLONIDINE. [Concomitant]
     Active Substance: CLONIDINE
  5. GLIPIZIDE. [Concomitant]
     Active Substance: GLIPIZIDE
  6. LEVOTHYROXINE. [Concomitant]
     Active Substance: LEVOTHYROXINE
  7. LANTUS [Concomitant]
     Active Substance: INSULIN GLARGINE
  8. PREVACID [Suspect]
     Active Substance: LANSOPRAZOLE
     Indication: GASTROOESOPHAGEAL REFLUX DISEASE
     Route: 065
     Dates: start: 20130611
  9. PREVACID 24 HR [Suspect]
     Active Substance: LANSOPRAZOLE
     Route: 065
     Dates: start: 201001, end: 201505
  10. LASIX [Concomitant]
     Active Substance: FUROSEMIDE
     Dates: start: 20150325
  11. TRAZODONE [Concomitant]
     Active Substance: TRAZODONE HYDROCHLORIDE
     Dates: start: 20130611
  12. SEROQUEL [Concomitant]
     Active Substance: QUETIAPINE FUMARATE
  13. VITAMIN B12 [Concomitant]
     Active Substance: CYANOCOBALAMIN
  14. ACCUPRIL [Concomitant]
     Active Substance: QUINAPRIL HYDROCHLORIDE
  15. EZETIMIBE. [Concomitant]
     Active Substance: EZETIMIBE
  16. NEXIUM 24HR [Suspect]
     Active Substance: ESOMEPRAZOLE MAGNESIUM
     Route: 048
     Dates: start: 201001, end: 201505
  17. LEVEMIR [Concomitant]
     Active Substance: INSULIN DETEMIR
  18. LEVITRA [Concomitant]
     Active Substance: VARDENAFIL HYDROCHLORIDE
  19. BACTROBAN [Concomitant]
     Active Substance: MUPIROCIN\MUPIROCIN CALCIUM
  20. PREVACID [Suspect]
     Active Substance: LANSOPRAZOLE
     Indication: GASTROOESOPHAGEAL REFLUX DISEASE
     Route: 065
     Dates: start: 201001, end: 201505
  21. JANUVIA [Concomitant]
     Active Substance: SITAGLIPTIN PHOSPHATE
     Dates: start: 20150423
  22. NYSTATIN. [Concomitant]
     Active Substance: NYSTATIN
     Dates: start: 20121003
  23. ALLOPURINOL. [Concomitant]
     Active Substance: ALLOPURINOL
  24. IBUPROFEN. [Concomitant]
     Active Substance: IBUPROFEN
  25. MELOXICAM. [Concomitant]
     Active Substance: MELOXICAM
  26. BENAZEPRIL [Concomitant]
     Active Substance: BENAZEPRIL HYDROCHLORIDE
     Dates: start: 20141210
  27. GABAPENTIN. [Concomitant]
     Active Substance: GABAPENTIN
     Dates: start: 20131105
  28. CARVEDILOL. [Concomitant]
     Active Substance: CARVEDILOL
  29. CEFADROXIL. [Concomitant]
     Active Substance: CEFADROXIL
  30. NOVOLIN NOS [Concomitant]
     Active Substance: INSULIN HUMAN
  31. ACTOS [Concomitant]
     Active Substance: PIOGLITAZONE HYDROCHLORIDE
     Dates: start: 20131105
  32. METFORMIN [Concomitant]
     Active Substance: METFORMIN HYDROCHLORIDE
  33. PRAVASTATIN. [Concomitant]
     Active Substance: PRAVASTATIN
  34. FERROUS SULFATE. [Concomitant]
     Active Substance: FERROUS SULFATE
     Dates: start: 20150302
  35. ATORVASTATIN [Concomitant]
     Active Substance: ATORVASTATIN
  36. ZIPRASIDONE. [Concomitant]
     Active Substance: ZIPRASIDONE
  37. WARFARIN [Concomitant]
     Active Substance: WARFARIN
  38. PRILOSEC OTC [Suspect]
     Active Substance: OMEPRAZOLE MAGNESIUM
     Indication: GASTROOESOPHAGEAL REFLUX DISEASE
     Route: 048
     Dates: start: 201001, end: 201505
  39. AMLODIPINE BESYLATE. [Concomitant]
     Active Substance: AMLODIPINE BESYLATE
     Dates: start: 20150423
  40. TESTOSTERONE CYPIONATE. [Concomitant]
     Active Substance: TESTOSTERONE CYPIONATE
     Dates: start: 20130924
  41. TERAZOSIN [Concomitant]
     Active Substance: TERAZOSIN HYDROCHLORIDE
  42. FAMOTIDINE. [Concomitant]
     Active Substance: FAMOTIDINE
  43. COUMADIN [Concomitant]
     Active Substance: WARFARIN SODIUM
  44. TYLENOL [Concomitant]
     Active Substance: ACETAMINOPHEN
  45. ELOCON [Concomitant]
     Active Substance: MOMETASONE FUROATE

REACTIONS (4)
  - Chronic kidney disease [Not Recovered/Not Resolved]
  - Nephrogenic anaemia [Unknown]
  - Acute kidney injury [Unknown]
  - Renal failure [Unknown]

NARRATIVE: CASE EVENT DATE: 20150518
